FAERS Safety Report 5919858-X (Version None)
Quarter: 2008Q4

REPORT INFORMATION
  Report Type: 
  Country: None (occurrence: None)
  Receive Date: 20081015
  Receipt Date: 20081007
  Transmission Date: 20090506
  Serious: Yes (Other)
  Sender: FDA-Public Use
  Company Number: FR-PFIZER INC-2008084582

PATIENT
  Sex: Male
  Weight: 73 kg

DRUGS (8)
  1. LIPITOR [Suspect]
     Route: 048
     Dates: end: 20080826
  2. AMLODIPINE [Concomitant]
  3. ZOPICLONE [Concomitant]
  4. VENLAFAXINE HCL [Concomitant]
  5. METOCLOPRAMIDE [Concomitant]
  6. INSULIN [Concomitant]
  7. OMEPRAZOLE [Concomitant]
  8. HEPARIN [Concomitant]

REACTIONS (2)
  - BLOOD CHOLESTEROL DECREASED [None]
  - BLOOD CREATINE PHOSPHOKINASE INCREASED [None]
